FAERS Safety Report 10480940 (Version 1)
Quarter: 2014Q3

REPORT INFORMATION
  Report Type: Report from Study
  Country: US (occurrence: US)
  Receive Date: 20140929
  Receipt Date: 20140929
  Transmission Date: 20150326
  Serious: Yes (Hospitalization, Other)
  Sender: FDA-Public Use
  Company Number: US-ABBVIE-14K-163-1287573-00

PATIENT
  Age: 40 Year
  Sex: Female

DRUGS (2)
  1. HUMIRA [Suspect]
     Active Substance: ADALIMUMAB
     Indication: PSORIASIS
     Dates: start: 20140403
  2. TYLENOL [Suspect]
     Active Substance: ACETAMINOPHEN
     Indication: PAIN
     Dates: start: 201405

REACTIONS (7)
  - Drug ineffective [Unknown]
  - Hot flush [Recovering/Resolving]
  - Pain [Not Recovered/Not Resolved]
  - Uterine enlargement [Recovering/Resolving]
  - Constipation [Recovered/Resolved]
  - Ovarian cyst ruptured [Recovering/Resolving]
  - Alopecia [Recovering/Resolving]

NARRATIVE: CASE EVENT DATE: 2014
